FAERS Safety Report 14857105 (Version 1)
Quarter: 2018Q2

REPORT INFORMATION
  Report Type: Spontaneous
  Country: BG (occurrence: BG)
  Receive Date: 20180507
  Receipt Date: 20180507
  Transmission Date: 20180711
  Serious: Yes (Hospitalization, Other)
  Sender: FDA-Public Use
  Company Number: BG-ABBVIE-18K-022-2346130-00

PATIENT
  Age: 50 Year
  Sex: Male

DRUGS (2)
  1. METHOTREXATE. [Concomitant]
     Active Substance: METHOTREXATE
     Indication: PRODUCT USED FOR UNKNOWN INDICATION
  2. HUMIRA [Suspect]
     Active Substance: ADALIMUMAB
     Indication: PSORIASIS
     Route: 058

REACTIONS (8)
  - Fall [Unknown]
  - Nasopharyngitis [Unknown]
  - Angina pectoris [Unknown]
  - Hypertensive crisis [Unknown]
  - Myocardial infarction [Unknown]
  - Rib fracture [Unknown]
  - Nasopharyngitis [Recovered/Resolved]
  - Angina pectoris [Recovered/Resolved]
